FAERS Safety Report 7497476-2 (Version None)
Quarter: 2011Q2

REPORT INFORMATION
  Report Type: 
  Country: None (occurrence: None)
  Receive Date: 20110523
  Receipt Date: 20110512
  Transmission Date: 20111010
  Serious: Yes (Other)
  Sender: FDA-Public Use
  Company Number: DE-ELI_LILLY_AND_COMPANY-DE201105003219

PATIENT
  Sex: Male

DRUGS (1)
  1. FORTEO [Suspect]
     Indication: OSTEOPOROSIS
     Dosage: UNK, QD
     Route: 058
     Dates: start: 20100207

REACTIONS (4)
  - DYSPNOEA [None]
  - PULMONARY FUNCTION TEST ABNORMAL [None]
  - PULMONARY FIBROSIS [None]
  - PEAK EXPIRATORY FLOW RATE DECREASED [None]
